FAERS Safety Report 17573020 (Version 2)
Quarter: 2020Q1

REPORT INFORMATION
  Report Type: Spontaneous
  Country: BR (occurrence: BR)
  Receive Date: 20200323
  Receipt Date: 20200330
  Transmission Date: 20200409
  Serious: Yes (Death, Hospitalization, Other)
  Sender: FDA-Public Use
  Company Number: BR-CELGENEUS-BRA-20200307261

PATIENT
  Age: 65 Year
  Sex: Female

DRUGS (3)
  1. DECITABINE. [Suspect]
     Active Substance: DECITABINE
     Indication: PRODUCT USED FOR UNKNOWN INDICATION
     Route: 065
  2. VIDAZA [Suspect]
     Active Substance: AZACITIDINE
     Indication: MYELODYSPLASTIC SYNDROME
     Dosage: 100 MG
     Route: 058
     Dates: start: 20181203
  3. VIDAZA [Suspect]
     Active Substance: AZACITIDINE
     Dosage: 75 MG
     Route: 058
     Dates: end: 201908

REACTIONS (5)
  - Haematocrit decreased [Unknown]
  - White blood cell count decreased [Unknown]
  - Dyspnoea [Unknown]
  - Disease progression [Fatal]
  - Pancytopenia [Unknown]

NARRATIVE: CASE EVENT DATE: 20200206
